FAERS Safety Report 9619928 (Version 3)
Quarter: 2014Q1

REPORT INFORMATION
  Report Type: Spontaneous
  Country: BR (occurrence: BR)
  Receive Date: 20131014
  Receipt Date: 20140220
  Transmission Date: 20141002
  Serious: Yes (Other)
  Sender: FDA-Public Use
  Company Number: BR-BRISTOL-MYERS SQUIBB COMPANY-19493691

PATIENT
  Age: 27 Year
  Sex: Female
  Weight: 57 kg

DRUGS (1)
  1. YERVOY [Suspect]
     Indication: MALIGNANT MELANOMA
     Route: 042
     Dates: start: 201308

REACTIONS (3)
  - Pyrexia [Recovering/Resolving]
  - Abdominal distension [Recovering/Resolving]
  - Night sweats [Recovering/Resolving]
